FAERS Safety Report 7346171-9 (Version None)
Quarter: 2011Q1

REPORT INFORMATION
  Report Type: 
  Country: None (occurrence: None)
  Receive Date: 20110301
  Receipt Date: 20110216
  Transmission Date: 20110831
  Serious: Yes (Hospitalization)
  Sender: FDA-Public Use
  Company Number: GER/UKI/10/0011871

PATIENT
  Age: 73 Year
  Sex: Female

DRUGS (13)
  1. PANTOPRAZOLE [Suspect]
     Indication: BARRETT'S OESOPHAGUS
     Dosage: 40 MG,1 IN 1 D, ORAL
     Route: 048
     Dates: start: 20080101, end: 20080101
  2. BENDROFLUMETHIAZIDE (BENDROFLUMETHIAZIDE) [Concomitant]
  3. RANITIDINE [Suspect]
     Indication: PRODUCT USED FOR UNKNOWN INDICATION
  4. ESOMEPRAZOLE (ESOMEPRAZOLE) [Suspect]
     Indication: BARRETT'S OESOPHAGUS
     Dosage: 20 MG, 1 IN 1 D
     Dates: start: 20080101, end: 20080101
  5. ERGOCALCIFEROL [Concomitant]
  6. CIMETIDINE [Concomitant]
  7. FUROSEMIDE [Concomitant]
  8. MAGNESIUM SULFATE [Concomitant]
  9. OMEPRAZOLE [Suspect]
     Indication: BARRETT'S OESOPHAGUS
     Dosage: 20-40MG, DAILY, ORAL
     Route: 048
     Dates: start: 19990101, end: 20080101
  10. CALCICHEW D3 (LEKOVIT CA) [Concomitant]
  11. ALFACALCIDOL (ALFACALCIDOL) [Concomitant]
  12. STEROID (STEROID ANTIBACTERIALS) [Concomitant]
  13. MAGNESIUM (MAGNESIUM) [Concomitant]

REACTIONS (15)
  - HYPOMAGNESAEMIA [None]
  - FALL [None]
  - ABDOMINAL PAIN [None]
  - MUSCLE SPASMS [None]
  - SYNCOPE [None]
  - CIRCULATORY COLLAPSE [None]
  - HYPOCALCAEMIA [None]
  - TETANY [None]
  - ARTHRALGIA [None]
  - PARAESTHESIA [None]
  - CHEST PAIN [None]
  - BALANCE DISORDER [None]
  - RASH PRURITIC [None]
  - LETHARGY [None]
  - ASTHENIA [None]
